FAERS Safety Report 4578425-3 (Version None)
Quarter: 2005Q1

REPORT INFORMATION
  Report Type: 
  Country: None (occurrence: None)
  Receive Date: 20050204
  Receipt Date: 20050204
  Transmission Date: 20050727
  Serious: Yes (Life-Threatening)
  Sender: FDA-Public Use
  Company Number: None

PATIENT
  Age: 60 Year
  Sex: Female
  Weight: 65.318 kg

DRUGS (8)
  1. SANDOSTATIN [Suspect]
     Indication: RECTAL CANCER
     Dosage: 30MG
     Dates: start: 20050126
  2. FLUOROURACIL [Suspect]
     Dosage: SEE IMAGE
     Dates: start: 20050131
  3. WELLBUTRIN [Concomitant]
  4. ALPRAZOLAM [Concomitant]
  5. QUININE [Concomitant]
  6. LISINOPRIL [Concomitant]
  7. PIROXICAM [Concomitant]
  8. HYDROCHLOROTHIAZIDE [Concomitant]

REACTIONS (13)
  - ANXIETY [None]
  - APNOEA [None]
  - BLOOD SODIUM DECREASED [None]
  - GRAND MAL CONVULSION [None]
  - HAEMATOCRIT DECREASED [None]
  - HAEMOGLOBIN DECREASED [None]
  - HEADACHE [None]
  - INJECTION SITE ERYTHEMA [None]
  - INJECTION SITE SWELLING [None]
  - LYMPHOCYTE PERCENTAGE DECREASED [None]
  - NEUTROPHIL PERCENTAGE INCREASED [None]
  - RED CELL DISTRIBUTION WIDTH INCREASED [None]
  - STRESS [None]
